FAERS Safety Report 9034885 (Version 1)
Quarter: 2013Q1

REPORT INFORMATION
  Report Type: Spontaneous
  Country: JP (occurrence: None)
  Receive Date: 20130116
  Receipt Date: 20130116
  Transmission Date: 20140127
  Serious: Yes (Other)
  Sender: FDA-Public Use
  Company Number: DSA_61859_2013

PATIENT
  Age: 75 Year
  Sex: Female

DRUGS (1)
  1. RENIVACE [Suspect]
     Indication: PRODUCT USED FOR UNKNOWN INDICATION
     Route: 048
     Dates: start: 201111, end: 201203

REACTIONS (1)
  - Drug-induced liver injury [None]
